FAERS Safety Report 13711965 (Version 1)
Quarter: 2017Q3

REPORT INFORMATION
  Report Type: Spontaneous
  Country: US (occurrence: US)
  Receive Date: 20170703
  Receipt Date: 20170703
  Transmission Date: 20171127
  Serious: No
  Sender: FDA-Public Use
  Company Number: US-JNJFOC-20170406506

PATIENT
  Age: 39 Year
  Sex: Female
  Weight: 136.08 kg

DRUGS (2)
  1. TOPAMAX [Suspect]
     Active Substance: TOPIRAMATE
     Indication: SLEEP TERROR
     Route: 048
     Dates: start: 20170404, end: 20170405
  2. TOPAMAX [Suspect]
     Active Substance: TOPIRAMATE
     Indication: SLEEP TERROR
     Route: 048
     Dates: start: 20170327, end: 20170404

REACTIONS (4)
  - Vision blurred [Not Recovered/Not Resolved]
  - Eye pain [Not Recovered/Not Resolved]
  - Off label use [Unknown]
  - Product use in unapproved indication [Unknown]

NARRATIVE: CASE EVENT DATE: 20170327
